FAERS Safety Report 5400441-X (Version None)
Quarter: 2007Q3

REPORT INFORMATION
  Report Type: 
  Country: None (occurrence: None)
  Receive Date: 20070730
  Receipt Date: 20070720
  Transmission Date: 20080115
  Serious: Yes (Other)
  Sender: FDA-Public Use
  Company Number: B0480946A

PATIENT
  Age: 68 Year
  Sex: Female

DRUGS (1)
  1. HYCAMTIN [Suspect]
     Indication: DRUG USE FOR UNKNOWN INDICATION
     Dosage: 1.27MG PER DAY
     Route: 065
     Dates: start: 20060724, end: 20060818

REACTIONS (21)
  - ALANINE AMINOTRANSFERASE INCREASED [None]
  - ALOPECIA [None]
  - ANOREXIA [None]
  - ASPARTATE AMINOTRANSFERASE INCREASED [None]
  - BACK PAIN [None]
  - BLOOD BILIRUBIN INCREASED [None]
  - BLOOD PHOSPHORUS DECREASED [None]
  - DIARRHOEA [None]
  - DIZZINESS [None]
  - EOSINOPHIL COUNT DECREASED [None]
  - FATIGUE [None]
  - HAEMOGLOBIN DECREASED [None]
  - MONOCYTE COUNT DECREASED [None]
  - NAUSEA [None]
  - NEUTROPHIL COUNT DECREASED [None]
  - PLATELET COUNT DECREASED [None]
  - PROTEIN TOTAL DECREASED [None]
  - RED BLOOD CELL COUNT DECREASED [None]
  - VOMITING [None]
  - WEIGHT DECREASED [None]
  - WHITE BLOOD CELL COUNT DECREASED [None]
